FAERS Safety Report 11858018 (Version 4)
Quarter: 2016Q1

REPORT INFORMATION
  Report Type: Spontaneous
  Country: US (occurrence: US)
  Receive Date: 20151222
  Receipt Date: 20160328
  Transmission Date: 20160526
  Serious: Yes (Other)
  Sender: FDA-Public Use
  Company Number: US-JNJFOC-20151212479

PATIENT
  Age: 63 Year
  Sex: Female
  Weight: 54.43 kg

DRUGS (4)
  1. REMICADE [Suspect]
     Active Substance: INFLIXIMAB
     Indication: COLITIS ULCERATIVE
     Route: 042
     Dates: start: 201412, end: 201512
  2. HUMIRA [Suspect]
     Active Substance: ADALIMUMAB
     Indication: COLITIS ULCERATIVE
     Route: 065
  3. REMICADE [Suspect]
     Active Substance: INFLIXIMAB
     Indication: COLITIS ULCERATIVE
     Route: 042
     Dates: start: 201304, end: 201308
  4. LIALDA [Concomitant]
     Active Substance: MESALAMINE
     Indication: COLITIS ULCERATIVE
     Route: 065
     Dates: start: 201306

REACTIONS (18)
  - Arthralgia [Not Recovered/Not Resolved]
  - Rash vesicular [Not Recovered/Not Resolved]
  - Lupus-like syndrome [Recovering/Resolving]
  - Bedridden [Not Recovered/Not Resolved]
  - Insomnia [Not Recovered/Not Resolved]
  - Drug dose omission [Unknown]
  - Pruritus [Not Recovered/Not Resolved]
  - Antinuclear antibody increased [Recovering/Resolving]
  - Movement disorder [Not Recovered/Not Resolved]
  - Sensory disturbance [Not Recovered/Not Resolved]
  - Immune system disorder [Unknown]
  - Cellulitis [Unknown]
  - Urticaria [Not Recovered/Not Resolved]
  - Chromaturia [Not Recovered/Not Resolved]
  - Chills [Unknown]
  - Adverse event [Unknown]
  - Colitis ulcerative [Unknown]
  - Muscular weakness [Not Recovered/Not Resolved]

NARRATIVE: CASE EVENT DATE: 201308
